FAERS Safety Report 16696879 (Version 3)
Quarter: 2020Q1

REPORT INFORMATION
  Report Type: Spontaneous
  Country: US (occurrence: US)
  Receive Date: 20190813
  Receipt Date: 20200305
  Transmission Date: 20200409
  Serious: No
  Sender: FDA-Public Use
  Company Number: US-BRISTOL-MYERS SQUIBB COMPANY-BMS-2019-079570

PATIENT
  Age: 63 Year
  Sex: Female

DRUGS (1)
  1. SPRYCEL [Suspect]
     Active Substance: DASATINIB
     Indication: CHRONIC MYELOID LEUKAEMIA
     Dosage: 80 MILLIGRAM, QD
     Route: 048
     Dates: start: 20190615

REACTIONS (6)
  - Blood pressure increased [Unknown]
  - Heart rate decreased [Unknown]
  - Periorbital swelling [Unknown]
  - Pain in extremity [Unknown]
  - Rash [Unknown]
  - Bone pain [Unknown]

NARRATIVE: CASE EVENT DATE: 2019
